APPROVED DRUG PRODUCT: NOREPINEPHRINE BITARTRATE
Active Ingredient: NOREPINEPHRINE BITARTRATE
Strength: EQ 1MG BASE/ML
Dosage Form/Route: INJECTABLE;INJECTION
Application: A040522 | Product #001
Applicant: METRICS PHARMACEUTICAL VENTURES LLC
Approved: Sep 30, 2004 | RLD: No | RS: No | Type: DISCN